FAERS Safety Report 13927834 (Version 1)
Quarter: 2017Q3

REPORT INFORMATION
  Report Type: Spontaneous
  Country: US (occurrence: US)
  Receive Date: 20170901
  Receipt Date: 20170901
  Transmission Date: 20171127
  Serious: No
  Sender: FDA-Public Use
  Company Number: US-PFIZER INC-2017367018

PATIENT
  Age: 27 Year
  Sex: Female
  Weight: 70.3 kg

DRUGS (1)
  1. DEPO-PROVERA [Suspect]
     Active Substance: MEDROXYPROGESTERONE ACETATE
     Indication: CONTRACEPTION
     Dosage: 1 DF, SINGLE
     Dates: start: 201201, end: 201201

REACTIONS (16)
  - Fungal infection [Recovered/Resolved]
  - Diplopia [Not Recovered/Not Resolved]
  - Eye pain [Not Recovered/Not Resolved]
  - Tinnitus [Not Recovered/Not Resolved]
  - Mass [Unknown]
  - Vaginal haemorrhage [Recovered/Resolved]
  - Feeling abnormal [Recovering/Resolving]
  - Vitamin D deficiency [Unknown]
  - Migraine [Not Recovered/Not Resolved]
  - Infertility [Recovered/Resolved]
  - Vision blurred [Not Recovered/Not Resolved]
  - Arthralgia [Not Recovered/Not Resolved]
  - Nausea [Recovering/Resolving]
  - Anger [Recovering/Resolving]
  - Bone pain [Not Recovered/Not Resolved]
  - Vomiting [Recovering/Resolving]

NARRATIVE: CASE EVENT DATE: 2012
